FAERS Safety Report 12411401 (Version 4)
Quarter: 2016Q4

REPORT INFORMATION
  Report Type: Report from Study
  Country: BR (occurrence: BR)
  Receive Date: 20160527
  Receipt Date: 20161128
  Transmission Date: 20170207
  Serious: Yes (Hospitalization, Other)
  Sender: FDA-Public Use
  Company Number: PHHY2013BR092340

PATIENT
  Age: 21 Year
  Sex: Male
  Weight: 54 kg

DRUGS (8)
  1. EXJADE [Suspect]
     Active Substance: DEFERASIROX
     Dosage: 4 DF, QD
     Route: 048
  2. EXJADE [Suspect]
     Active Substance: DEFERASIROX
     Dosage: 2000 MG, UNK
     Route: 048
  3. EXJADE [Suspect]
     Active Substance: DEFERASIROX
     Dosage: 1625 MG (30 MG/KG), QD (3 DF OF 500 MG AND 1 DF OF 125 MG)
     Route: 048
  4. EXJADE [Suspect]
     Active Substance: DEFERASIROX
     Indication: THALASSAEMIA BETA
     Dosage: 20 MG/KG, QD (2 TABLETS OF 500 MG)
     Route: 048
     Dates: start: 20080828, end: 20130709
  5. EXJADE [Suspect]
     Active Substance: DEFERASIROX
     Dosage: 20 MG/KG, QD (2 TABLETS OF 500 MG)
     Route: 048
     Dates: start: 20130722
  6. EXJADE [Suspect]
     Active Substance: DEFERASIROX
     Dosage: 15 MG/KG, QD (1 TABLET OF 250 MG AND 2 TABLETS OF 500 MG)
     Route: 048
  7. EXJADE [Suspect]
     Active Substance: DEFERASIROX
     Dosage: 4 DF, UNK (500 MG)
     Route: 048
     Dates: start: 2010
  8. EXJADE [Suspect]
     Active Substance: DEFERASIROX
     Dosage: 1625 MG (30 MG/KG), QD (3 DF OF 500 MG AND 1 DF OF 125 MG)
     Route: 048
     Dates: start: 20151213

REACTIONS (29)
  - Nephrolithiasis [Recovered/Resolved]
  - Micturition disorder [Unknown]
  - Pain [Unknown]
  - Muscle spasms [Recovered/Resolved]
  - Blood urea abnormal [Recovered/Resolved]
  - Feeling abnormal [Unknown]
  - Erythema [Unknown]
  - Nausea [Unknown]
  - Renal colic [Recovered/Resolved]
  - Nephrolithiasis [Recovered/Resolved]
  - Weight decreased [Unknown]
  - Urine output decreased [Unknown]
  - Respiration abnormal [Unknown]
  - Allergic transfusion reaction [Recovering/Resolving]
  - Lactose intolerance [Unknown]
  - Diarrhoea [Recovered/Resolved]
  - Pruritus generalised [Unknown]
  - Abdominal pain [Recovered/Resolved]
  - Muscle spasms [Recovered/Resolved]
  - Malaise [Recovered/Resolved]
  - Arthralgia [Unknown]
  - Urine output increased [Unknown]
  - Haemoglobin decreased [Unknown]
  - Blood creatinine increased [Not Recovered/Not Resolved]
  - Blood creatinine abnormal [Recovered/Resolved]
  - Dysuria [Unknown]
  - Serum ferritin increased [Unknown]
  - Vomiting [Recovered/Resolved]
  - General physical condition abnormal [Unknown]

NARRATIVE: CASE EVENT DATE: 201307
